FAERS Safety Report 10566927 (Version 1)
Quarter: 2014Q4

REPORT INFORMATION
  Report Type: Spontaneous
  Country: BE (occurrence: BE)
  Receive Date: 20141105
  Receipt Date: 20141105
  Transmission Date: 20150529
  Serious: Yes (Congenital Anomaly)
  Sender: FDA-Public Use
  Company Number: BE-ABBVIE-14P-013-1301149-00

PATIENT
  Sex: Female

DRUGS (1)
  1. VALPROIC ACID. [Suspect]
     Active Substance: VALPROIC ACID
     Indication: MATERNAL EXPOSURE TIMING UNSPECIFIED
     Route: 064

REACTIONS (14)
  - Talipes [Unknown]
  - Foetal anticonvulsant syndrome [Unknown]
  - Ear malformation [Unknown]
  - Prominent epicanthal folds [Unknown]
  - Atrial septal defect [Recovered/Resolved]
  - Joint dislocation [Unknown]
  - Conductive deafness [Unknown]
  - Craniosynostosis [Unknown]
  - Foetal exposure during pregnancy [Unknown]
  - Hypertonic bladder [Unknown]
  - Dysmorphism [Unknown]
  - Hypertelorism of orbit [Unknown]
  - Motor developmental delay [Unknown]
  - Speech disorder developmental [Unknown]
